FAERS Safety Report 12769193 (Version 1)
Quarter: 2016Q3

REPORT INFORMATION
  Report Type: Spontaneous
  Country: US (occurrence: US)
  Receive Date: 20160921
  Receipt Date: 20160921
  Transmission Date: 20161109
  Serious: Yes (Hospitalization)
  Sender: FDA-Public Use
  Company Number: US-BAYER-2016-179544

PATIENT
  Age: 35 Year
  Sex: Female

DRUGS (10)
  1. YAZ [Suspect]
     Active Substance: DROSPIRENONE\ETHINYL ESTRADIOL
     Indication: CONTRACEPTION
     Route: 048
  2. METHYLPHENIDATE. [Concomitant]
     Active Substance: METHYLPHENIDATE
  3. FIORICET [Concomitant]
     Active Substance: ACETAMINOPHEN\BUTALBITAL\CAFFEINE
     Indication: HEADACHE
  4. LORTAB [Concomitant]
     Active Substance: ACETAMINOPHEN\HYDROCODONE BITARTRATE
  5. ZOLOFT [Concomitant]
     Active Substance: SERTRALINE HYDROCHLORIDE
  6. KEFLEX [Concomitant]
     Active Substance: CEPHALEXIN
  7. LEVAQUIN [Concomitant]
     Active Substance: LEVOFLOXACIN
  8. ALPRAZOLAM. [Concomitant]
     Active Substance: ALPRAZOLAM
  9. SUPRAX [Concomitant]
     Active Substance: CEFIXIME
  10. PREDNISONE. [Concomitant]
     Active Substance: PREDNISONE

REACTIONS (1)
  - Pulmonary embolism [None]

NARRATIVE: CASE EVENT DATE: 20120627
